FAERS Safety Report 7665222-5 (Version None)
Quarter: 2011Q3

REPORT INFORMATION
  Report Type: 
  Country: None (occurrence: None)
  Receive Date: 20110806
  Receipt Date: 20110412
  Transmission Date: 20111222
  Serious: No
  Sender: FDA-Public Use
  Company Number: US-ABBOTT-11P-163-0718413-00

PATIENT
  Sex: Male
  Weight: 85.806 kg

DRUGS (1)
  1. NIASPAN [Suspect]
     Indication: HIGH DENSITY LIPOPROTEIN DECREASED
     Dosage: DAILY AT BEDTIME
     Dates: start: 20110406

REACTIONS (3)
  - FLUSHING [None]
  - SKIN BURNING SENSATION [None]
  - FEELING ABNORMAL [None]
